FAERS Safety Report 19568671 (Version 2)
Quarter: 2021Q3

REPORT INFORMATION
  Report Type: Report from Study
  Country: AR (occurrence: AR)
  Receive Date: 20210714
  Receipt Date: 20210817
  Transmission Date: 20211014
  Serious: Yes (Hospitalization, Other)
  Sender: FDA-Public Use
  Company Number: AR-INCYTE CORPORATION-2020IN004022

PATIENT

DRUGS (10)
  1. JAKAVI [Suspect]
     Active Substance: RUXOLITINIB
     Indication: MYELOFIBROSIS
     Dosage: 15 MG, Q12H
     Route: 065
     Dates: start: 2015
  2. JAKAVI [Suspect]
     Active Substance: RUXOLITINIB
     Dosage: 5 MG, Q12H
     Route: 065
  3. JAKAVI [Suspect]
     Active Substance: RUXOLITINIB
     Dosage: 10 OT, Q12H
     Route: 065
  4. JAKAVI [Suspect]
     Active Substance: RUXOLITINIB
     Dosage: 20 MG, QD
     Route: 048
     Dates: start: 20150101
  5. JAKAVI [Suspect]
     Active Substance: RUXOLITINIB
     Dosage: 10 MG, QD
     Route: 048
  6. JAKAVI [Suspect]
     Active Substance: RUXOLITINIB
     Dosage: 5 MG, QD
     Route: 048
     Dates: start: 20150101
  7. JAKAVI [Suspect]
     Active Substance: RUXOLITINIB
     Dosage: 10 MG, BID (TWICE DAILY)
     Route: 048
     Dates: start: 20150101
  8. JAKAVI [Suspect]
     Active Substance: RUXOLITINIB
     Dosage: 15, Q12H
     Route: 065
  9. JAKAVI [Suspect]
     Active Substance: RUXOLITINIB
     Dosage: 5 MG, QOD
     Route: 048
  10. JAKAVI [Suspect]
     Active Substance: RUXOLITINIB
     Dosage: 5 MG
     Route: 048

REACTIONS (6)
  - Platelet count decreased [Unknown]
  - Anaemia [Unknown]
  - Inappropriate schedule of product administration [Unknown]
  - Red blood cell count decreased [Unknown]
  - White blood cell count decreased [Unknown]
  - Red blood cell count abnormal [Unknown]

NARRATIVE: CASE EVENT DATE: 20210610
